FAERS Safety Report 7582180-2 (Version None)
Quarter: 2011Q2

REPORT INFORMATION
  Report Type: 
  Country: None (occurrence: None)
  Receive Date: 20110630
  Receipt Date: 20110620
  Transmission Date: 20111010
  Serious: No
  Sender: FDA-Public Use
  Company Number: US-BIOGENIDEC-2011BI023140

PATIENT
  Sex: Female

DRUGS (1)
  1. AVONEX [Suspect]
     Indication: MULTIPLE SCLEROSIS

REACTIONS (12)
  - MIGRAINE [None]
  - AGITATION [None]
  - FATIGUE [None]
  - THROAT IRRITATION [None]
  - FREQUENT BOWEL MOVEMENTS [None]
  - INFLUENZA LIKE ILLNESS [None]
  - HYPERHIDROSIS [None]
  - SUICIDAL IDEATION [None]
  - FEELING COLD [None]
  - DECREASED APPETITE [None]
  - DEPRESSION [None]
  - NAUSEA [None]
